FAERS Safety Report 5492757-6 (Version None)
Quarter: 2007Q4

REPORT INFORMATION
  Report Type: 
  Country: None (occurrence: None)
  Receive Date: 20071023
  Receipt Date: 20071015
  Transmission Date: 20080405
  Serious: Yes (Other)
  Sender: FDA-Public Use
  Company Number: PHBS2007CH17379

PATIENT
  Sex: Female

DRUGS (1)
  1. LESCOL [Suspect]
     Route: 048

REACTIONS (1)
  - BILIARY COLIC [None]
